FAERS Safety Report 10147173 (Version 2)
Quarter: 2014Q2

REPORT INFORMATION
  Report Type: Spontaneous
  Country: US (occurrence: US)
  Receive Date: 20140501
  Receipt Date: 20140603
  Transmission Date: 20141212
  Serious: No
  Sender: FDA-Public Use
  Company Number: US-009507513-1405USA000314

PATIENT
  Sex: Female
  Weight: 49.89 kg

DRUGS (5)
  1. MIRALAX [Suspect]
     Indication: VOLVULUS
     Dosage: 17 G, QD/BID
     Route: 048
     Dates: start: 2011
  2. VERAPAMIL [Concomitant]
     Indication: HYPERTENSION
     Dosage: UNK, UNKNOWN
  3. AMERGE [Concomitant]
     Indication: MIGRAINE
     Dosage: UNK, UNKNOWN
  4. COLACE [Concomitant]
     Indication: VOLVULUS
     Dosage: UNK, UNKNOWN
  5. AMITIZA [Concomitant]
     Indication: IRRITABLE BOWEL SYNDROME
     Dosage: UNK, UNKNOWN

REACTIONS (4)
  - Inappropriate schedule of drug administration [Unknown]
  - Incorrect drug administration duration [Unknown]
  - Off label use [Unknown]
  - Product quality issue [Unknown]
